FAERS Safety Report 9104249 (Version 1)
Quarter: 2013Q1

REPORT INFORMATION
  Report Type: Spontaneous
  Country: US (occurrence: US)
  Receive Date: 20130219
  Receipt Date: 20130219
  Transmission Date: 20140127
  Serious: Yes (Other)
  Sender: FDA-Public Use
  Company Number: US-NICOBRDEVP-2013-02008

PATIENT
  Sex: Female
  Weight: 76 kg

DRUGS (1)
  1. DOXYCYCLINE HYCLATE [Suspect]
     Indication: TICK-BORNE FEVER
     Dosage: 100MG 1 BID
     Route: 048
     Dates: start: 20121227, end: 20130107

REACTIONS (2)
  - Vision blurred [Not Recovered/Not Resolved]
  - Macular degeneration [Not Recovered/Not Resolved]
